FAERS Safety Report 24277680 (Version 1)
Quarter: 2024Q3

REPORT INFORMATION
  Report Type: Spontaneous
  Country: CN (occurrence: CN)
  Receive Date: 20240903
  Receipt Date: 20240903
  Transmission Date: 20241017
  Serious: Yes (Hospitalization)
  Sender: DR REDDYS
  Company Number: None

PATIENT
  Age: 77 Year
  Sex: Female
  Weight: 62 kg

DRUGS (2)
  1. CLOPIDOGREL BISULFATE [Suspect]
     Active Substance: CLOPIDOGREL BISULFATE
     Indication: Myocardial infarction
     Dosage: 75MG,QD
     Route: 048
     Dates: start: 20240823, end: 20240824
  2. CLOPIDOGREL BISULFATE [Suspect]
     Active Substance: CLOPIDOGREL BISULFATE
     Indication: Arteriosclerosis coronary artery

REACTIONS (1)
  - Purpura [Recovered/Resolved]

NARRATIVE: CASE EVENT DATE: 20240824
